FAERS Safety Report 10069253 (Version 1)
Quarter: 2014Q2

REPORT INFORMATION
  Report Type: Spontaneous
  Country: US (occurrence: US)
  Receive Date: 20140409
  Receipt Date: 20140409
  Transmission Date: 20141212
  Serious: Yes (Other)
  Sender: FDA-Public Use
  Company Number: US-ASTELLAS-2013US010947

PATIENT
  Sex: Female

DRUGS (1)
  1. PROTOPIC [Suspect]
     Indication: ECZEMA
     Dosage: UNK
     Route: 061
     Dates: start: 201309

REACTIONS (4)
  - Vision blurred [Recovered/Resolved]
  - Eyelid pain [Recovered/Resolved]
  - Bacterial infection [Unknown]
  - Condition aggravated [Unknown]
